FAERS Safety Report 8432220-3 (Version None)
Quarter: 2012Q2

REPORT INFORMATION
  Report Type: 
  Country: None (occurrence: None)
  Receive Date: 20120613
  Receipt Date: 20120604
  Transmission Date: 20120825
  Serious: Yes (Hospitalization)
  Sender: FDA-Public Use
  Company Number: US-BRISTOL-MYERS SQUIBB COMPANY-16600710

PATIENT
  Age: 55 Year
  Sex: Male

DRUGS (6)
  1. REYATAZ [Suspect]
     Indication: HIV INFECTION
     Dosage: FOR A COUPLE OF YEARS
     Route: 048
  2. REYATAZ [Suspect]
     Indication: ACQUIRED IMMUNODEFICIENCY SYNDROME
     Dosage: FOR A COUPLE OF YEARS
     Route: 048
  3. FLONASE [Concomitant]
  4. TRUVADA [Concomitant]
     Dosage: 1DF= 200/300 MG DAILY
     Route: 048
  5. SODIUM CHLORIDE [Concomitant]
     Dosage: 1DF= 1-2 SPRAYS EACH PRN
  6. NORVIR [Concomitant]
     Route: 048

REACTIONS (2)
  - NEPHROLITHIASIS [None]
  - HYDRONEPHROSIS [None]
